FAERS Safety Report 15497313 (Version 1)
Quarter: 2018Q4

REPORT INFORMATION
  Report Type: Spontaneous
  Country: US (occurrence: US)
  Receive Date: 20181013
  Receipt Date: 20181013
  Transmission Date: 20190205
  Serious: No
  Sender: FDA-Public Use
  Company Number: None

PATIENT
  Age: 44 Year
  Sex: Male
  Weight: 95.85 kg

DRUGS (3)
  1. FLOVENT HFA [Concomitant]
     Active Substance: FLUTICASONE PROPIONATE
  2. FLUNISOLIDE 0.025% NASAL SOLUTION [Suspect]
     Active Substance: FLUNISOLIDE
     Indication: RHINITIS ALLERGIC
     Dosage: ?          QUANTITY:4 SPRAY(S);?
     Route: 055
     Dates: start: 20181002
  3. GABAPENTIN. [Concomitant]
     Active Substance: GABAPENTIN

REACTIONS (1)
  - Tinnitus [None]

NARRATIVE: CASE EVENT DATE: 20181011
